FAERS Safety Report 19277881 (Version 1)
Quarter: 2021Q2

REPORT INFORMATION
  Report Type: Other
  Country: CA (occurrence: CA)
  Receive Date: 20210520
  Receipt Date: 20210520
  Transmission Date: 20210717
  Serious: Yes (Other)
  Sender: FDA-Public Use
  Company Number: CA-CELLTRION INC.-2021CA006697

PATIENT

DRUGS (16)
  1. TYLENOL [Concomitant]
     Active Substance: ACETAMINOPHEN
     Dosage: UNK, 3 EVERY 1 DAYS
  2. ACTEMRA [Suspect]
     Active Substance: TOCILIZUMAB
     Indication: PRODUCT USED FOR UNKNOWN INDICATION
     Route: 065
  3. METHOTREXATE. [Concomitant]
     Active Substance: METHOTREXATE
     Indication: RHEUMATOID ARTHRITIS
  4. PREDNISONE. [Concomitant]
     Active Substance: PREDNISONE
     Dosage: 1 MILLIGRAM, 2 EVERY 1 DAYS
  5. HUMIRA [Suspect]
     Active Substance: ADALIMUMAB
     Indication: PRODUCT USED FOR UNKNOWN INDICATION
     Route: 058
  6. LOSEC [Concomitant]
     Active Substance: OMEPRAZOLE
     Indication: GASTRIC DISORDER
     Dosage: 20 MILLIGRAM, 1 EVERY 1 DAYS
  7. SALMO SALAR [Concomitant]
     Active Substance: ATLANTIC SALMON OIL
  8. ENBREL [Suspect]
     Active Substance: ETANERCEPT
     Indication: PRODUCT USED FOR UNKNOWN INDICATION
     Dosage: 50 MILLIGRAM
     Route: 065
  9. MOTRIN [Concomitant]
     Active Substance: IBUPROFEN
     Dosage: 600 MILLIGRAM, 2 EVERY 1 DAYS
     Route: 048
  10. NAPROSYN E [Concomitant]
     Active Substance: NAPROXEN
     Dosage: 500 MILLIGRAM, 2 EVERY 1 DAYS
  11. RITUXIMAB (UNKNOWN) [Suspect]
     Active Substance: RITUXIMAB
     Indication: PRODUCT USED FOR UNKNOWN INDICATION
     Route: 065
  12. ERGOCALCIFEROL. [Concomitant]
     Active Substance: ERGOCALCIFEROL
  13. SULFASALAZINE. [Concomitant]
     Active Substance: SULFASALAZINE
  14. XELJANZ [Concomitant]
     Active Substance: TOFACITINIB CITRATE
     Indication: RHEUMATOID ARTHRITIS
     Dosage: 5 MILLIGRAM, 2 EVERY 1 DAYS
     Route: 048
  15. CALCIUM GLUCONATE. [Concomitant]
     Active Substance: CALCIUM GLUCONATE
     Dosage: 1250 MILLIGRAM, 2 EVERY 1 DAYS
  16. ESOMEPRAZOLE. [Concomitant]
     Active Substance: ESOMEPRAZOLE MAGNESIUM
     Dosage: 20 MILLIGRAM, 1 EVERY 1 DAYS

REACTIONS (8)
  - Pain [Unknown]
  - Arthralgia [Unknown]
  - Bursitis [Unknown]
  - Drug ineffective [Unknown]
  - Joint noise [Unknown]
  - Musculoskeletal stiffness [Unknown]
  - Anaemia [Unknown]
  - Joint swelling [Unknown]
